FAERS Safety Report 5177896-1 (Version None)
Quarter: 2006Q4

REPORT INFORMATION
  Report Type: 
  Country: None (occurrence: None)
  Receive Date: 20061218
  Receipt Date: 20060727
  Transmission Date: 20070319
  Serious: No
  Sender: FDA-Public Use
  Company Number: US-AMGEN-KDL187876

PATIENT
  Sex: Female

DRUGS (11)
  1. ENBREL [Suspect]
     Indication: RHEUMATOID ARTHRITIS
     Route: 058
     Dates: start: 20060722
  2. METHOTREXATE [Concomitant]
  3. DIOVAN [Concomitant]
  4. TRIAMTEREN [Concomitant]
  5. CELEBREX [Concomitant]
  6. ZANTAC [Concomitant]
  7. AMITRIPTYLINE HCL [Concomitant]
  8. ALLOPURINOL [Concomitant]
  9. LIPITOR [Concomitant]
  10. CLARITIN [Concomitant]
  11. LEUCOVORIN CALCIUM [Concomitant]

REACTIONS (1)
  - PANIC ATTACK [None]
